FAERS Safety Report 21298296 (Version 2)
Quarter: 2022Q3

REPORT INFORMATION
  Report Type: Spontaneous
  Country: CA (occurrence: CA)
  Receive Date: 20220906
  Receipt Date: 20220914
  Transmission Date: 20221027
  Serious: Yes (Death)
  Sender: FDA-Public Use
  Company Number: CA-PFIZER INC-202201114417

PATIENT
  Age: 70 Year

DRUGS (4)
  1. DOCETAXEL [Suspect]
     Active Substance: DOCETAXEL
     Indication: Non-small cell lung cancer metastatic
     Dosage: POST CYCLE #4 DOCETAXEL
  2. DOCETAXEL [Suspect]
     Active Substance: DOCETAXEL
     Indication: ROS1 gene rearrangement
  3. ENCORAFENIB [Concomitant]
     Active Substance: ENCORAFENIB
     Dosage: 450 MG, 1X/DAY, (6 X 75 MG CAPSULE) QD
  4. BINIMETINIB [Concomitant]
     Active Substance: BINIMETINIB
     Dosage: 45 MG, 2X/DAY,  (3 X 15 MG TABLET) BID

REACTIONS (2)
  - Death [Fatal]
  - Neoplasm progression [Unknown]
